FAERS Safety Report 24702066 (Version 1)
Quarter: 2024Q4

REPORT INFORMATION
  Report Type: Spontaneous
  Country: US (occurrence: None)
  Receive Date: 20241205
  Receipt Date: 20241205
  Transmission Date: 20250115
  Serious: No
  Sender: Public
  Company Number: None

PATIENT
  Sex: Female

DRUGS (1)
  1. ACTEMRA [Suspect]
     Active Substance: TOCILIZUMAB
     Indication: Arthritis
     Dosage: FREQ: INJECT 1 PEN SUBCUTANEOUSLY ONCE EVERY 14 DAYS
     Route: 058
     Dates: start: 20240207

REACTIONS (3)
  - Injection site reaction [None]
  - Product dose omission issue [None]
  - Surgery [None]
